FAERS Safety Report 9016063 (Version 3)
Quarter: 2017Q2

REPORT INFORMATION
  Report Type: Report from Study
  Country: US (occurrence: US)
  Receive Date: 20130116
  Receipt Date: 20170407
  Transmission Date: 20170830
  Serious: Yes (Hospitalization, Other)
  Sender: FDA-Public Use
  Company Number: US-ACTELION-A-US2013-77792

PATIENT
  Age: 64 Year
  Sex: Female
  Weight: 79.37 kg

DRUGS (4)
  1. VENTAVIS [Suspect]
     Active Substance: ILOPROST
     Indication: PULMONARY ARTERIAL HYPERTENSION
     Dosage: 5 MCG, 6-9X/DAY
     Route: 055
  2. PLAVIX [Concomitant]
     Active Substance: CLOPIDOGREL BISULFATE
  3. LETAIRIS [Concomitant]
     Active Substance: AMBRISENTAN
  4. SILDENAFIL. [Concomitant]
     Active Substance: SILDENAFIL

REACTIONS (5)
  - Vasculitis [Unknown]
  - Influenza [Unknown]
  - Vascular insufficiency [Recovering/Resolving]
  - Toe amputation [Recovering/Resolving]
  - Finger amputation [Unknown]
